FAERS Safety Report 8560045-7 (Version None)
Quarter: 2012Q3

REPORT INFORMATION
  Report Type: 
  Country: None (occurrence: None)
  Receive Date: 20120802
  Receipt Date: 20120725
  Transmission Date: 20120928
  Serious: Yes (Other)
  Sender: FDA-Public Use
  Company Number: CA-ABBOTT-12P-028-0950227-00

PATIENT
  Sex: Male
  Weight: 86.1 kg

DRUGS (1)
  1. HUMIRA [Suspect]
     Indication: CROHN'S DISEASE
     Route: 058
     Dates: start: 20110801

REACTIONS (2)
  - SMALL INTESTINAL STENOSIS [None]
  - CROHN'S DISEASE [None]
